FAERS Safety Report 25812249 (Version 1)
Quarter: 2025Q3

REPORT INFORMATION
  Report Type: Report from Study
  Country: MX (occurrence: MX)
  Receive Date: 20250917
  Receipt Date: 20250917
  Transmission Date: 20251020
  Serious: Yes (Hospitalization)
  Sender: NOVARTIS
  Company Number: MX-002147023-NVSC2025MX124189

PATIENT
  Sex: Female
  Weight: 84 kg

DRUGS (4)
  1. KISQALI [Suspect]
     Active Substance: RIBOCICLIB SUCCINATE
     Indication: Breast cancer
     Dosage: 3 DOSAGE FORM (OF 200MG) QD
     Route: 048
     Dates: start: 20250613
  2. FULVESTRANT [Concomitant]
     Active Substance: FULVESTRANT
     Indication: Breast cancer
     Dosage: 2 DOSAGE FORM, QMO
     Route: 030
     Dates: start: 20250613
  3. ETORICOXIB [Concomitant]
     Active Substance: ETORICOXIB
     Indication: Bone pain
     Route: 048
     Dates: start: 2023
  4. ETORICOXIB [Concomitant]
     Active Substance: ETORICOXIB
     Indication: Arthralgia

REACTIONS (12)
  - Malaise [Unknown]
  - Tracheal inflammation [Recovering/Resolving]
  - Tracheal pain [Recovering/Resolving]
  - Speech disorder [Recovering/Resolving]
  - Feeding disorder [Recovering/Resolving]
  - Decreased appetite [Not Recovered/Not Resolved]
  - Nausea [Not Recovered/Not Resolved]
  - Vomiting [Not Recovered/Not Resolved]
  - Abdominal discomfort [Unknown]
  - Weight decreased [Unknown]
  - Fatigue [Unknown]
  - Arthralgia [Unknown]

NARRATIVE: CASE EVENT DATE: 20250101
